FAERS Safety Report 7138375-5 (Version None)
Quarter: 2010Q4

REPORT INFORMATION
  Report Type: 
  Country: None (occurrence: None)
  Receive Date: 20101206
  Receipt Date: 20101129
  Transmission Date: 20110411
  Serious: Yes (Hospitalization)
  Sender: FDA-Public Use
  Company Number: FR-ROCHE-745668

PATIENT
  Age: 42 Year
  Sex: Female

DRUGS (2)
  1. XELODA [Suspect]
     Route: 065
     Dates: start: 20100901
  2. XELODA [Suspect]
     Route: 065

REACTIONS (2)
  - BONE MARROW FAILURE [None]
  - COAGULOPATHY [None]
